FAERS Safety Report 26122580 (Version 1)
Quarter: 2025Q4

REPORT INFORMATION
  Report Type: Spontaneous
  Country: EU (occurrence: EU)
  Receive Date: 20251204
  Receipt Date: 20251204
  Transmission Date: 20260118
  Serious: Yes (Other)
  Sender: MYLAN
  Company Number: None

PATIENT
  Age: 13 Year
  Sex: Female

DRUGS (4)
  1. ACETAMINOPHEN [Suspect]
     Active Substance: ACETAMINOPHEN
     Indication: Product used for unknown indication
     Dosage: 50 DOSAGE FORM, 1 TOTAL (PATIENT TOOK 50 TABLETS PARACETAMOL 500MG AT ONCE ON A SUICIDE ATTEMPT)
  2. ACETAMINOPHEN [Suspect]
     Active Substance: ACETAMINOPHEN
     Dosage: 50 DOSAGE FORM, 1 TOTAL (PATIENT TOOK 50 TABLETS PARACETAMOL 500MG AT ONCE ON A SUICIDE ATTEMPT)
     Route: 065
  3. ACETAMINOPHEN [Suspect]
     Active Substance: ACETAMINOPHEN
     Dosage: 50 DOSAGE FORM, 1 TOTAL (PATIENT TOOK 50 TABLETS PARACETAMOL 500MG AT ONCE ON A SUICIDE ATTEMPT)
     Route: 065
  4. ACETAMINOPHEN [Suspect]
     Active Substance: ACETAMINOPHEN
     Dosage: 50 DOSAGE FORM, 1 TOTAL (PATIENT TOOK 50 TABLETS PARACETAMOL 500MG AT ONCE ON A SUICIDE ATTEMPT)

REACTIONS (2)
  - Suicide attempt [Unknown]
  - Intentional overdose [Unknown]
